FAERS Safety Report 9830873 (Version 1)
Quarter: 2014Q1

REPORT INFORMATION
  Report Type: Spontaneous
  Country: US (occurrence: US)
  Receive Date: 20140120
  Receipt Date: 20140120
  Transmission Date: 20141002
  Serious: Yes (Life-Threatening, Hospitalization)
  Sender: FDA-Public Use
  Company Number: US-JNJFOC-20140102862

PATIENT
  Age: 49 Year
  Sex: Male

DRUGS (3)
  1. FENTANYL TRANSDERMAL SYSTEM [Suspect]
     Indication: DRUG ABUSE
     Route: 042
  2. HEROIN [Suspect]
     Indication: DRUG ABUSE
     Route: 042
  3. COCAINE [Suspect]
     Indication: DRUG ABUSE
     Route: 065

REACTIONS (22)
  - Intentional drug misuse [Unknown]
  - Endocarditis [Recovering/Resolving]
  - Rheumatoid factor [Unknown]
  - Glomerulonephritis [Recovering/Resolving]
  - Drug diversion [Unknown]
  - Splenomegaly [Unknown]
  - Hepatitis A [Unknown]
  - Hepatitis B [Unknown]
  - Hepatitis C [Unknown]
  - Respiratory failure [Unknown]
  - Acute respiratory distress syndrome [Recovered/Resolved]
  - Anaemia [Unknown]
  - Thrombocytopenia [Unknown]
  - Renal tubular necrosis [Recovering/Resolving]
  - Septic embolus [Unknown]
  - Splenic infarction [Unknown]
  - Pulmonary granuloma [Unknown]
  - Septic embolus [Unknown]
  - Headache [Unknown]
  - Toothache [Unknown]
  - Back pain [Unknown]
  - VIIth nerve paralysis [Unknown]
